FAERS Safety Report 9687779 (Version 2)
Quarter: 2014Q2

REPORT INFORMATION
  Report Type: Spontaneous
  Country: US (occurrence: US)
  Receive Date: 20131114
  Receipt Date: 20140516
  Transmission Date: 20141212
  Serious: No
  Sender: FDA-Public Use
  Company Number: US-PFIZER INC-2013321899

PATIENT
  Age: 81 Year
  Sex: Female

DRUGS (8)
  1. SUTENT [Suspect]
     Indication: RENAL CANCER
     Dosage: 25 MG, 1X/DAY
     Route: 048
     Dates: start: 20130822
  2. SUTENT [Suspect]
     Dosage: 50 MG, QD X 28 DAYS ON, THEN 14 DAYS OFF
     Route: 048
     Dates: start: 20131001, end: 20131106
  3. SUTENT [Suspect]
     Dosage: 25 MG (ONE CAPSULE EOD) ALTERNATE DAY
     Route: 048
  4. SUTENT [Suspect]
     Dosage: 50 MG (2 CAPSULES EOD) ALTERNATE DAY
     Route: 048
  5. OMEPRAZOLE [Concomitant]
     Dosage: UNK
  6. REGLAN [Concomitant]
     Dosage: UNK
  7. CARAFATE [Concomitant]
     Dosage: UNK
  8. BENAZEPRIL [Concomitant]
     Dosage: UNK

REACTIONS (4)
  - Oral pain [Unknown]
  - Dyspnoea [Unknown]
  - Decreased appetite [Unknown]
  - Dyspnoea [Unknown]
